FAERS Safety Report 7772168-0 (Version None)
Quarter: 2011Q3

REPORT INFORMATION
  Report Type: 
  Country: None (occurrence: None)
  Receive Date: 20110922
  Receipt Date: 20101001
  Transmission Date: 20111222
  Serious: Yes (Hospitalization)
  Sender: FDA-Public Use
  Company Number: US-ASTRAZENECA-2010SE46382

PATIENT
  Sex: Male

DRUGS (5)
  1. SEROQUEL [Suspect]
     Indication: BIPOLAR DISORDER
     Dosage: 200-400 MG AT NIGHT
     Route: 048
  2. TOPROL-XL [Concomitant]
     Indication: HYPERTENSION
  3. SEROQUEL [Suspect]
     Indication: MAJOR DEPRESSION
     Dosage: 200-400 MG AT NIGHT
     Route: 048
  4. SEROQUEL [Suspect]
     Indication: SLEEP DISORDER
     Dosage: 200-400 MG AT NIGHT
     Route: 048
  5. PRISTIQ [Concomitant]

REACTIONS (1)
  - BLOOD CREATINE PHOSPHOKINASE INCREASED [None]
